FAERS Safety Report 6882833-5 (Version None)
Quarter: 2010Q3

REPORT INFORMATION
  Report Type: 
  Country: None (occurrence: None)
  Receive Date: 20100729
  Receipt Date: 20100722
  Transmission Date: 20110219
  Serious: No
  Sender: FDA-Public Use
  Company Number: BR-ROCHE-716943

PATIENT
  Age: 29 Year
  Sex: Female

DRUGS (1)
  1. ROACUTAN [Suspect]
     Indication: PRODUCT USED FOR UNKNOWN INDICATION
     Route: 065
     Dates: start: 20100701, end: 20100707

REACTIONS (2)
  - NO ADVERSE EVENT [None]
  - PREGNANCY [None]
